FAERS Safety Report 26109839 (Version 1)
Quarter: 2025Q4

REPORT INFORMATION
  Report Type: Spontaneous
  Country: US (occurrence: None)
  Receive Date: 20251128
  Receipt Date: 20251128
  Transmission Date: 20260117
  Serious: Yes (Hospitalization)
  Sender: FDA-CTU
  Company Number: None

PATIENT
  Sex: Male
  Weight: 82.8 kg

DRUGS (3)
  1. TADALAFIL [Suspect]
     Active Substance: TADALAFIL
     Indication: Pulmonary arterial hypertension
     Dosage: 40 MG DAILY ORAL
     Route: 048
     Dates: start: 20240718
  2. AMBRISENTAN [Suspect]
     Active Substance: AMBRISENTAN
     Indication: Pulmonary arterial hypertension
     Dosage: 10MG DAILY ORAL
     Route: 048
     Dates: start: 20240718
  3. REMODULIN [Suspect]
     Active Substance: TREPROSTINIL

REACTIONS (6)
  - Headache [None]
  - Vomiting [None]
  - Myalgia [None]
  - Diarrhoea [None]
  - Withdrawal syndrome [None]
  - Device dislocation [None]
